FAERS Safety Report 5737305-8 (Version None)
Quarter: 2008Q2

REPORT INFORMATION
  Report Type: 
  Country: None (occurrence: None)
  Receive Date: 20080512
  Receipt Date: 20080512
  Transmission Date: 20081010
  Serious: Yes (Other)
  Sender: FDA-Public Use
  Company Number: None

PATIENT
  Age: 61 Year
  Sex: Male
  Weight: 90.7194 kg

DRUGS (2)
  1. DIGITEK 12.5 MG ACTAVIS TOTOWA LLC [Suspect]
     Indication: HEART RATE IRREGULAR
     Dosage: 12.5 MG EVERY OTHER DAY PO
     Route: 048
     Dates: start: 20071101, end: 20080415
  2. DIGITEK 12.5 MG ACTAVIS TOTOWA LLC [Suspect]
     Indication: MYOCARDIAL INFARCTION
     Dosage: 12.5 MG EVERY OTHER DAY PO
     Route: 048
     Dates: start: 20071101, end: 20080415

REACTIONS (2)
  - HEART RATE DECREASED [None]
  - HYPOTENSION [None]
